FAERS Safety Report 9528758 (Version 2)
Quarter: 2013Q3

REPORT INFORMATION
  Report Type: Spontaneous
  Country: US (occurrence: US)
  Receive Date: 20130917
  Receipt Date: 20130917
  Transmission Date: 20140515
  Serious: No
  Sender: FDA-Public Use
  Company Number: US-BANPHARM-20131231

PATIENT
  Age: 83 Year
  Sex: Female
  Weight: 68.04 kg

DRUGS (4)
  1. ZYRTEC LIQUID GELS 10 MG [Suspect]
     Indication: HYPERSENSITIVITY
     Dosage: 1 DF, QD,
     Route: 048
     Dates: start: 20130414, end: 20130416
  2. INDERAL [Concomitant]
     Dosage: 10 MG, 1/2 PILL, QID,
     Dates: start: 2004
  3. NORVASC [Concomitant]
     Dosage: 5 MG, 1 DF,
  4. VITAMIN D [Concomitant]

REACTIONS (4)
  - Dizziness [Recovered/Resolved]
  - Nausea [Recovered/Resolved]
  - Lethargy [Recovered/Resolved]
  - Drug administered to patient of inappropriate age [Unknown]
